FAERS Safety Report 23292430 (Version 4)
Quarter: 2024Q2

REPORT INFORMATION
  Report Type: Spontaneous
  Country: US (occurrence: US)
  Receive Date: 20231213
  Receipt Date: 20240503
  Transmission Date: 20240715
  Serious: Yes (Disabling, Other)
  Sender: FDA-Public Use
  Company Number: US-HORIZON THERAPEUTICS-HZN-2023-010439

PATIENT

DRUGS (50)
  1. TEPEZZA [Suspect]
     Active Substance: TEPROTUMUMAB-TRBW
     Indication: Endocrine ophthalmopathy
     Dosage: FIRST INFUSION
     Route: 042
     Dates: start: 202006
  2. TEPEZZA [Suspect]
     Active Substance: TEPROTUMUMAB-TRBW
     Dosage: EIGHTH INFUSION
     Route: 042
     Dates: start: 20201119
  3. TEPEZZA [Suspect]
     Active Substance: TEPROTUMUMAB-TRBW
     Dosage: UNKNOWN INFUSION
     Route: 042
     Dates: start: 202101
  4. ALPRAZOLAM [Concomitant]
     Active Substance: ALPRAZOLAM
     Route: 048
  5. AMITRIPTYLINE [Concomitant]
     Active Substance: AMITRIPTYLINE
     Dosage: 3 TABLETS BY MOUTH AT BED TIME
     Route: 048
  6. AMLODIPINE [Concomitant]
     Active Substance: AMLODIPINE BESYLATE
  7. AMOXICILLIN [Concomitant]
     Active Substance: AMOXICILLIN
  8. ATENOLOL [Concomitant]
     Active Substance: ATENOLOL
  9. BELSOMRA [Concomitant]
     Active Substance: SUVOREXANT
  10. BUPROPION HYDROCHLORIDE [Concomitant]
     Active Substance: BUPROPION HYDROCHLORIDE
  11. CARDIZEM LA [Concomitant]
     Active Substance: DILTIAZEM HYDROCHLORIDE
  12. CHLORHEXIDINE GLUCONATE [Concomitant]
     Active Substance: CHLORHEXIDINE GLUCONATE
  13. CHLORZOXAZONE [Concomitant]
     Active Substance: CHLORZOXAZONE
  14. CITALOPRAM [Concomitant]
     Active Substance: CITALOPRAM\CITALOPRAM HYDROBROMIDE
     Dosage: UNK UNK, QD
     Route: 048
  15. CLONAZEPAM [Concomitant]
     Active Substance: CLONAZEPAM
  16. CLOTRIMAZOLE [Concomitant]
     Active Substance: CLOTRIMAZOLE
  17. DEXTROAMPHET SACCHARAT, AMPHET ASPARTATE, DEXTROAMPHET SULFATE AND AMP [Concomitant]
     Active Substance: AMPHETAMINE ASPARTATE\AMPHETAMINE ASPARTATE MONOHYDRATE\AMPHETAMINE SULFATE\DEXTROAMPHETAMINE SACCHA
  18. DOXEPIN [Concomitant]
     Active Substance: DOXEPIN
  19. DOXEPIN [Concomitant]
     Active Substance: DOXEPIN
  20. ERYTHROMYCIN [Concomitant]
     Active Substance: ERYTHROMYCIN
  21. ESZOPICLONE [Concomitant]
     Active Substance: ESZOPICLONE
  22. FERROUS GLUCONATE [Concomitant]
     Active Substance: FERROUS GLUCONATE
     Dosage: 38 MG
     Route: 048
  23. FUROSEMIDE [Concomitant]
     Active Substance: FUROSEMIDE
     Dosage: UNK UNK, QD
     Route: 048
  24. FERROUS FUMARATE\FOLIC ACID [Concomitant]
     Active Substance: FERROUS FUMARATE\FOLIC ACID
  25. HYDROXYZINE PAMOATE [Concomitant]
     Active Substance: HYDROXYZINE PAMOATE
  26. LAMOTRIGINE [Concomitant]
     Active Substance: LAMOTRIGINE
     Dosage: UNK UNK, QD
     Route: 048
  27. LAMOTRIGINE [Concomitant]
     Active Substance: LAMOTRIGINE
  28. LEVOFLOXACIN [Concomitant]
     Active Substance: LEVOFLOXACIN
  29. LEVOTHYROXINE [Concomitant]
     Active Substance: LEVOTHYROXINE\LEVOTHYROXINE SODIUM
  30. LIDOCAINE [Concomitant]
     Active Substance: LIDOCAINE
  31. LITHIUM CARBONATE [Concomitant]
     Active Substance: LITHIUM CARBONATE
  32. HYDROCODONE [Concomitant]
     Active Substance: HYDROCODONE
     Indication: Pain
     Route: 048
  33. METHOCARBAMOL [Concomitant]
     Active Substance: METHOCARBAMOL
  34. MISOPROSTOL [Concomitant]
     Active Substance: MISOPROSTOL
     Dosage: UNK UNK, QID
     Route: 048
     Dates: start: 20141029
  35. OMEPRAZOLE [Concomitant]
     Active Substance: OMEPRAZOLE
  36. ONDANSETRON [Concomitant]
     Active Substance: ONDANSETRON
  37. OXYCODONE [Concomitant]
     Active Substance: OXYCODONE\OXYCODONE HYDROCHLORIDE
  38. PREDNISONE [Concomitant]
     Active Substance: PREDNISONE
  39. PREVIDENT [Concomitant]
     Active Substance: SODIUM FLUORIDE
  40. PROMETHAZINE [Concomitant]
     Active Substance: PROMETHAZINE HYDROCHLORIDE
     Dosage: UNK UNK, QID
  41. PROMETHEGAN [Concomitant]
     Active Substance: PROMETHAZINE HYDROCHLORIDE
  42. QUETIAPINE [Concomitant]
     Active Substance: QUETIAPINE
  43. SILENOR [Concomitant]
     Active Substance: DOXEPIN HYDROCHLORIDE
  44. SILVER SULFADIAZINE [Concomitant]
     Active Substance: SILVER SULFADIAZINE
  45. TRAMADOL [Concomitant]
     Active Substance: TRAMADOL\TRAMADOL HYDROCHLORIDE
     Dosage: UNK UNK, QID
     Route: 048
  46. TRIAMCINOLONE ACETONIDE [Concomitant]
     Active Substance: TRIAMCINOLONE ACETONIDE
  47. VENTOLIN HFA [Concomitant]
     Active Substance: ALBUTEROL SULFATE
  48. VITAMIN D2 [Concomitant]
     Active Substance: ERGOCALCIFEROL
  49. ZOLPIDEM [Concomitant]
     Active Substance: ZOLPIDEM TARTRATE
  50. PROMETHAZINE [Concomitant]
     Active Substance: PROMETHAZINE HYDROCHLORIDE

REACTIONS (58)
  - Physical disability [Not Recovered/Not Resolved]
  - Disability [Not Recovered/Not Resolved]
  - Sight disability [Unknown]
  - Deafness permanent [Not Recovered/Not Resolved]
  - Pain [Not Recovered/Not Resolved]
  - Injury [Not Recovered/Not Resolved]
  - Anxiety [Not Recovered/Not Resolved]
  - Concomitant disease aggravated [Not Recovered/Not Resolved]
  - Discomfort [Unknown]
  - Impaired quality of life [Not Recovered/Not Resolved]
  - Emotional distress [Not Recovered/Not Resolved]
  - Economic problem [Not Recovered/Not Resolved]
  - Product quality issue [Unknown]
  - Palpitations [Unknown]
  - Temperature intolerance [Unknown]
  - Poor peripheral circulation [Unknown]
  - Eye irritation [Unknown]
  - Visual impairment [Unknown]
  - Dry eye [Not Recovered/Not Resolved]
  - Eye pain [Unknown]
  - Ocular discomfort [Unknown]
  - Anxiety [Unknown]
  - Vision blurred [Unknown]
  - Photophobia [Unknown]
  - Spondylolisthesis [Recovering/Resolving]
  - Insomnia [Unknown]
  - Muscular weakness [Recovered/Resolved]
  - Chills [Unknown]
  - Night sweats [Unknown]
  - Dysphagia [Unknown]
  - Sleep apnoea syndrome [Unknown]
  - Vomiting [Unknown]
  - Arthralgia [Unknown]
  - Musculoskeletal stiffness [Unknown]
  - Balance disorder [Unknown]
  - Coordination abnormal [Unknown]
  - Dizziness [Unknown]
  - Amnesia [Unknown]
  - Insomnia [Unknown]
  - Restless legs syndrome [Unknown]
  - Depression [Unknown]
  - Temperature intolerance [Unknown]
  - Seborrhoeic keratosis [Unknown]
  - Perioral dermatitis [Unknown]
  - Lentigo [Unknown]
  - Telangiectasia [Unknown]
  - Melanocytic naevus [Unknown]
  - Drug ineffective [Unknown]
  - Tinnitus [Not Recovered/Not Resolved]
  - Weight decreased [Unknown]
  - Weight decreased [Unknown]
  - Onycholysis [Unknown]
  - Muscle spasms [Unknown]
  - Fatigue [Unknown]
  - Diarrhoea [Unknown]
  - Nausea [Unknown]
  - Headache [Unknown]
  - Off label use [Unknown]

NARRATIVE: CASE EVENT DATE: 20200101
